FAERS Safety Report 14964025 (Version 2)
Quarter: 2019Q1

REPORT INFORMATION
  Report Type: Spontaneous
  Country: JP (occurrence: JP)
  Receive Date: 20180601
  Receipt Date: 20190115
  Transmission Date: 20190417
  Serious: Yes (Death, Hospitalization, Other)
  Sender: FDA-Public Use
  Company Number: JP-SA-2018SA143081

PATIENT
  Age: 77 Year
  Sex: Female
  Weight: 39.2 kg

DRUGS (7)
  1. FLUOROURACIL. [Suspect]
     Active Substance: FLUOROURACIL
     Dosage: UNKNOWN
     Route: 041
     Dates: start: 20180508, end: 20180510
  2. ALOXI [Concomitant]
     Active Substance: PALONOSETRON HYDROCHLORIDE
     Indication: COLON CANCER
     Dosage: 0.75 MG/DAY
     Route: 065
  3. ZALTRAP [Suspect]
     Active Substance: ZIV-AFLIBERCEPT
     Indication: COLON CANCER
     Dosage: 150 MG/DAY
     Route: 041
     Dates: start: 20180508, end: 20180508
  4. CALCIUM LEVOFOLINATE [Suspect]
     Active Substance: LEVOLEUCOVORIN CALCIUM
     Indication: COLON CANCER
     Dosage: 250 MG/DAY
     Route: 041
     Dates: start: 20180508, end: 20180508
  5. DECADRON [Concomitant]
     Active Substance: DEXAMETHASONE
     Indication: COLON CANCER
     Dosage: 16.5 MG/DAY
     Route: 065
  6. FLUOROURACIL. [Suspect]
     Active Substance: FLUOROURACIL
     Indication: COLON CANCER
     Dosage: 500 MG/DAY
     Route: 040
     Dates: start: 20180508, end: 20180508
  7. IRINOTECAN [Suspect]
     Active Substance: IRINOTECAN
     Indication: COLON CANCER
     Dosage: 180 MG/DAY
     Route: 041
     Dates: start: 20180508, end: 20180508

REACTIONS (8)
  - Shock [Recovered/Resolved]
  - Platelet count decreased [Recovered/Resolved]
  - Disseminated intravascular coagulation [Recovered/Resolved]
  - Malaise [Recovering/Resolving]
  - Febrile neutropenia [Recovered/Resolved]
  - Pyrexia [Recovered/Resolved]
  - Neutrophil count decreased [Recovered/Resolved]
  - Fibrin D dimer increased [Recovered/Resolved]

NARRATIVE: CASE EVENT DATE: 20180515
